FAERS Safety Report 6985994-2 (Version None)
Quarter: 2010Q3

REPORT INFORMATION
  Report Type: 
  Country: None (occurrence: None)
  Receive Date: 20100915
  Receipt Date: 20100903
  Transmission Date: 20110219
  Serious: Yes (Hospitalization, Other)
  Sender: FDA-Public Use
  Company Number: US-AMGEN-QUU431561

PATIENT
  Sex: Male
  Weight: 80 kg

DRUGS (11)
  1. NPLATE [Suspect]
     Indication: IDIOPATHIC THROMBOCYTOPENIC PURPURA
     Route: 058
     Dates: start: 20090209, end: 20090413
  2. PREDNISONE [Concomitant]
  3. RITUXIMAB [Concomitant]
     Dates: start: 20090207, end: 20090227
  4. DAPSONE [Concomitant]
  5. DANAZOL [Concomitant]
     Route: 048
     Dates: start: 20090101
  6. PRILOSEC [Concomitant]
     Route: 048
     Dates: start: 20090101
  7. NITROGLYCERIN [Concomitant]
  8. ALBUTEROL [Concomitant]
  9. NORVASC [Concomitant]
  10. LASIX [Concomitant]
  11. MULTI-VITAMINS [Concomitant]

REACTIONS (9)
  - ATRIOVENTRICULAR BLOCK COMPLETE [None]
  - BLOOD PHOSPHORUS DECREASED [None]
  - CANDIDIASIS [None]
  - DEEP VEIN THROMBOSIS [None]
  - OEDEMA PERIPHERAL [None]
  - PULMONARY EMBOLISM [None]
  - SKIN EXFOLIATION [None]
  - SMALL INTESTINAL OBSTRUCTION [None]
  - THROMBOCYTOSIS [None]
